FAERS Safety Report 8267572-0 (Version None)
Quarter: 2012Q2

REPORT INFORMATION
  Report Type: 
  Country: None (occurrence: None)
  Receive Date: 20120409
  Receipt Date: 20120327
  Transmission Date: 20120825
  Serious: Yes (Life-Threatening, Hospitalization, Other)
  Sender: FDA-Public Use
  Company Number: PHHO2012ES002783

PATIENT
  Sex: Female
  Weight: 90 kg

DRUGS (11)
  1. VALSARTAN [Suspect]
     Indication: CARDIAC FAILURE CHRONIC
     Dosage: UNK
     Route: 048
     Dates: start: 20111229
  2. CLOPIDOGREL [Concomitant]
     Indication: ANTIPLATELET THERAPY
     Dosage: 75 MG, QD (24 HRS)
     Dates: start: 20030101
  3. EPLERENONE [Concomitant]
     Dosage: 25 MG, QD (24 HRS)
     Route: 048
     Dates: start: 20110701
  4. ATORVASTATIN [Concomitant]
     Indication: BLOOD CHOLESTEROL INCREASED
     Dosage: 80 MG, QD (24 HRS)
     Route: 048
     Dates: start: 20030101
  5. VALSARTAN [Suspect]
     Dosage: 200 MG, UNK
     Route: 048
     Dates: start: 20120203
  6. RAMIPRIL [Concomitant]
     Indication: CARDIAC FAILURE CHRONIC
     Dosage: 25 MG, Q12H
     Route: 048
     Dates: start: 20110701
  7. ASPIRIN [Concomitant]
     Indication: ANTIPLATELET THERAPY
     Dosage: 100 MG, QD (24 HRS)
     Route: 048
     Dates: start: 20030101
  8. ENALAPRIL MALEATE [Suspect]
     Indication: CARDIAC FAILURE CHRONIC
     Dosage: UNK
     Route: 048
     Dates: start: 20111229
  9. ENALAPRIL MALEATE [Suspect]
     Dosage: 10 MG, UNK
     Route: 048
     Dates: start: 20120203
  10. NO TREATMENT RECEIVED [Suspect]
     Indication: CARDIAC FAILURE CHRONIC
     Dosage: NO TREATMENT
  11. BISOPROLOL FUMARATE [Concomitant]
     Dosage: 5 MG, Q12H
     Route: 048
     Dates: start: 20120112

REACTIONS (2)
  - CARDIAC FAILURE CHRONIC [None]
  - NORMOCHROMIC NORMOCYTIC ANAEMIA [None]
